FAERS Safety Report 16741822 (Version 1)
Quarter: 2019Q3

REPORT INFORMATION
  Report Type: Spontaneous
  Country: CA (occurrence: CA)
  Receive Date: 20190826
  Receipt Date: 20190826
  Transmission Date: 20191005
  Serious: Yes (Other)
  Sender: FDA-Public Use
  Company Number: CA-SEATTLE GENETICS-2019SGN02896

PATIENT
  Age: 17 Year
  Sex: Female
  Weight: 49 kg

DRUGS (13)
  1. BLEOMYCIN SULPHATE [Concomitant]
     Active Substance: BLEOMYCIN SULFATE
  2. DEXAMETHASONE. [Concomitant]
     Active Substance: DEXAMETHASONE
  3. GEMCITABINE. [Concomitant]
     Active Substance: GEMCITABINE
  4. VINORELBINE TARTRATE. [Concomitant]
     Active Substance: VINORELBINE TARTRATE
  5. DOXORUBICIN [Concomitant]
     Active Substance: DOXORUBICIN
  6. ETOPOSIDE. [Concomitant]
     Active Substance: ETOPOSIDE
  7. ADCETRIS [Suspect]
     Active Substance: BRENTUXIMAB VEDOTIN
     Indication: LYMPHOMA
     Dosage: 60.0 MG/M2, UNK
     Route: 042
  8. MELPHALAN. [Concomitant]
     Active Substance: MELPHALAN
  9. PREDNISONE. [Concomitant]
     Active Substance: PREDNISONE
  10. CYCLOPHOSPHAMIDE. [Concomitant]
     Active Substance: CYCLOPHOSPHAMIDE
  11. METHYLPREDNISOLONE. [Concomitant]
     Active Substance: METHYLPREDNISOLONE
  12. BUSULFAN. [Concomitant]
     Active Substance: BUSULFAN
  13. VINCRISTINE SULFATE. [Concomitant]
     Active Substance: VINCRISTINE SULFATE
     Dosage: 1.0 UNK, UNK

REACTIONS (3)
  - Rash [Recovering/Resolving]
  - Face oedema [Recovering/Resolving]
  - Pruritus [Recovering/Resolving]
